FAERS Safety Report 8429447-3 (Version None)
Quarter: 2012Q2

REPORT INFORMATION
  Report Type: 
  Country: None (occurrence: None)
  Receive Date: 20120323
  Receipt Date: 20110725
  Transmission Date: 20120825
  Serious: Yes (Life-Threatening, Hospitalization)
  Sender: FDA-Public Use
  Company Number: 163-21880-11042948

PATIENT
  Age: 54 Year
  Sex: Male
  Weight: 93.441 kg

DRUGS (5)
  1. REVLIMID [Suspect]
     Indication: MULTIPLE MYELOMA
     Dosage: 25 MG, DAILY X 14 DAYS, PO
     Route: 048
     Dates: start: 20110317, end: 20110508
  2. AREDIA [Concomitant]
  3. DEXAMETHASONE [Concomitant]
  4. ACYCLOVIR [Concomitant]
  5. COLACE (DOCUSATE SODIUM) [Concomitant]

REACTIONS (2)
  - LABYRINTHITIS [None]
  - PULMONARY EMBOLISM [None]
